FAERS Safety Report 16716187 (Version 2)
Quarter: 2019Q3

REPORT INFORMATION
  Report Type: Spontaneous
  Country: US (occurrence: US)
  Receive Date: 20190819
  Receipt Date: 20190902
  Transmission Date: 20191005
  Serious: Yes (Life-Threatening)
  Sender: FDA-Public Use
  Company Number: US-PFIZER INC-2019351095

PATIENT
  Sex: Female
  Weight: 89.98 kg

DRUGS (3)
  1. DOCETAXEL. [Suspect]
     Active Substance: DOCETAXEL
     Indication: BREAST CANCER FEMALE
     Dosage: 75 MG/M2, Q 21 DAYS FOR 4 DOSES
     Route: 042
     Dates: start: 20090101, end: 20090407
  2. TYVERB [Suspect]
     Active Substance: LAPATINIB
     Indication: BREAST CANCER FEMALE
     Dosage: 1500 MG, 1X/DAY
     Route: 042
     Dates: start: 20090501, end: 20100119
  3. TRASTUZUMAB. [Suspect]
     Active Substance: TRASTUZUMAB
     Indication: BREAST CANCER FEMALE
     Dosage: 4 MG/KG, ON DAY 1, WEEK I ONLY
     Route: 048
     Dates: start: 20090101, end: 20090407

REACTIONS (2)
  - Small cell lung cancer [Not Recovered/Not Resolved]
  - Second primary malignancy [Not Recovered/Not Resolved]

NARRATIVE: CASE EVENT DATE: 20160923
